FAERS Safety Report 9021314 (Version 1)
Quarter: 2013Q1

REPORT INFORMATION
  Report Type: Spontaneous
  Country: US (occurrence: US)
  Receive Date: 20130119
  Receipt Date: 20130119
  Transmission Date: 20140127
  Serious: No
  Sender: FDA-Public Use
  Company Number: US-ALLERGAN-1201247US

PATIENT
  Age: 35 None
  Sex: Female

DRUGS (6)
  1. BOTOX COSMETIC [Suspect]
     Indication: SKIN WRINKLING
     Dosage: 10 UNITS, SINGLE
     Route: 030
     Dates: start: 20120112, end: 20120112
  2. LATISSE 0.03% [Concomitant]
     Indication: GROWTH OF EYELASHES
     Dosage: 2 GTT, QPM
     Route: 061
  3. VALTREX [Concomitant]
     Indication: HERPES VIRUS INFECTION
     Dosage: 1 G, Q12H
     Route: 048
  4. DIFFERIN [Concomitant]
     Indication: ACNE
     Dosage: UNK
     Route: 061
  5. ALTABAX [Concomitant]
     Indication: ARTHROPOD BITE
     Dosage: UNK
     Route: 061
  6. HYDROXYZINE [Concomitant]
     Indication: ANTIALLERGIC THERAPY
     Dosage: 1 UNK, QHS
     Route: 048

REACTIONS (7)
  - Eyelid sensory disorder [Recovered/Resolved]
  - Eyelid sensory disorder [Recovered/Resolved]
  - Panic attack [Recovered/Resolved]
  - Anxiety [Recovered/Resolved]
  - Insomnia [Recovered/Resolved]
  - Wrong technique in drug usage process [Unknown]
  - Swelling face [Recovered/Resolved]
